FAERS Safety Report 19181050 (Version 1)
Quarter: 2021Q2

REPORT INFORMATION
  Report Type: Spontaneous
  Country: JP (occurrence: JP)
  Receive Date: 20210426
  Receipt Date: 20210426
  Transmission Date: 20210717
  Serious: Yes (Hospitalization)
  Sender: FDA-Public Use
  Company Number: JP-DSJP-DSJ-2021-112348

PATIENT
  Age: 87 Year
  Sex: Male
  Weight: 60 kg

DRUGS (2)
  1. PREDNISOLONE. [Suspect]
     Active Substance: PREDNISOLONE
     Indication: CEREBELLAR ATAXIA
     Dosage: 7.5MG/DAY
     Route: 048
  2. LIXIANA TABLETS [Suspect]
     Active Substance: EDOXABAN TOSYLATE
     Indication: ATRIAL FIBRILLATION
     Dosage: 15MG/DAY
     Route: 065

REACTIONS (2)
  - Mediastinitis [Recovering/Resolving]
  - Periodontitis [Recovering/Resolving]
